FAERS Safety Report 16139087 (Version 1)
Quarter: 2019Q2

REPORT INFORMATION
  Report Type: Report from Study
  Country: IT (occurrence: IT)
  Receive Date: 20190401
  Receipt Date: 20190401
  Transmission Date: 20190711
  Serious: Yes (Other)
  Sender: FDA-Public Use
  Company Number: IT-ACCORD-117017

PATIENT
  Age: 59 Year
  Sex: Female

DRUGS (3)
  1. EN [Suspect]
     Active Substance: DELORAZEPAM
     Route: 048
     Dates: start: 20181110, end: 20181110
  2. QUETIAPINE. [Suspect]
     Active Substance: QUETIAPINE
     Route: 048
     Dates: start: 20181110, end: 20181110
  3. CIRCADIN [Suspect]
     Active Substance: MELATONIN
     Dosage: STRENGTH: 2 MG
     Route: 048
     Dates: start: 20181110, end: 20181110

REACTIONS (2)
  - Drug abuse [Unknown]
  - Sopor [Recovering/Resolving]

NARRATIVE: CASE EVENT DATE: 20181110
